FAERS Safety Report 13201640 (Version 1)
Quarter: 2017Q1

REPORT INFORMATION
  Report Type: Spontaneous
  Country: US (occurrence: US)
  Receive Date: 20170208
  Receipt Date: 20170208
  Transmission Date: 20170428
  Serious: No
  Sender: FDA-Public Use
  Company Number: US-AMGEN-USASP2016069772

PATIENT
  Sex: Male

DRUGS (3)
  1. NEULASTA [Suspect]
     Active Substance: PEGFILGRASTIM
     Indication: WHITE BLOOD CELL COUNT DECREASED
     Dosage: UNK
     Route: 065
  2. XELODA [Concomitant]
     Active Substance: CAPECITABINE
     Dosage: 2 PILLS, 2 X A DAY
  3. AVASTIN [Concomitant]
     Active Substance: BEVACIZUMAB
     Dosage: 2 PILLS, 2 X A DAY

REACTIONS (2)
  - Neuropathy peripheral [Unknown]
  - Fatigue [Unknown]
